FAERS Safety Report 25166463 (Version 2)
Quarter: 2025Q2

REPORT INFORMATION
  Report Type: Spontaneous
  Country: ES (occurrence: ES)
  Receive Date: 20250407
  Receipt Date: 20250410
  Transmission Date: 20250717
  Serious: Yes (Hospitalization)
  Sender: ROCHE
  Company Number: None

PATIENT
  Age: 70 Year
  Sex: Female
  Weight: 84 kg

DRUGS (13)
  1. RITUXIMAB [Suspect]
     Active Substance: RITUXIMAB
     Indication: High-grade B-cell lymphoma
     Dosage: MOST RECENT DOSE 664 MG RECEIVED ON 30-OCT-2024
     Route: 042
     Dates: start: 20240828
  2. RITUXIMAB [Suspect]
     Active Substance: RITUXIMAB
     Dosage: MOST RECENT DOSE 664 MG RECEIVED ON 30-OCT-2024
     Route: 042
     Dates: start: 20240828
  3. RITUXIMAB [Suspect]
     Active Substance: RITUXIMAB
     Dosage: 664 MG, EVERY 3 WEEKS
     Route: 042
     Dates: start: 20241030
  4. APIXABAN [Suspect]
     Active Substance: APIXABAN
     Indication: Prophylaxis
     Dosage: FREQ:.5 D;MOST RECENT DOSE 2.5 MG RECEIVED ON 06-NOV-2024 PRIOR TO EVENT
     Route: 048
     Dates: start: 20240828
  5. DOXORUBICIN HYDROCHLORIDE [Suspect]
     Active Substance: DOXORUBICIN HYDROCHLORIDE
     Indication: High-grade B-cell lymphoma
     Dosage: MOST RECENT DOSE RECEIVED ON 88 MG 30-OCT-2024
     Route: 042
     Dates: start: 20240828
  6. DOXORUBICIN HYDROCHLORIDE [Suspect]
     Active Substance: DOXORUBICIN HYDROCHLORIDE
     Dosage: 88 MG, EVERY 3 WEEKS
     Route: 042
     Dates: start: 20241030
  7. VINCRISTINE SULFATE [Suspect]
     Active Substance: VINCRISTINE SULFATE
     Indication: High-grade B-cell lymphoma
     Dosage: MOST RECENT DOSE 2 MG RECEIVED ON 30-OCT-2024
     Route: 042
     Dates: start: 20240828
  8. PRIMPERAN [Concomitant]
     Active Substance: METOCLOPRAMIDE HYDROCHLORIDE
     Indication: Prophylaxis
     Route: 048
     Dates: start: 20240828
  9. OMEPRAZOLE [Concomitant]
     Active Substance: OMEPRAZOLE
     Indication: Prophylaxis
     Dosage: 20 MG, 1X/DAY
     Route: 048
     Dates: start: 20240919
  10. CODEINE PHOSPHATE [Concomitant]
     Active Substance: CODEINE PHOSPHATE
     Indication: Cough
     Dosage: 28.7 MG, 1X/DAY
     Route: 048
     Dates: start: 20241010, end: 20241025
  11. NEULASTA [Concomitant]
     Active Substance: PEGFILGRASTIM
     Indication: Prophylaxis
     Route: 058
     Dates: start: 20241031, end: 20241031
  12. ERYTHROPOIETIN [Concomitant]
     Active Substance: ERYTHROPOIETIN
     Indication: Anaemia
     Dosage: DOSE - 1 INJECTIONS
     Route: 058
     Dates: start: 20241101
  13. LOPERAMIDE [Concomitant]
     Active Substance: LOPERAMIDE
     Indication: Diarrhoea
     Dosage: 2 MG, 1X/DAY
     Route: 048
     Dates: start: 20241105, end: 20241111

REACTIONS (1)
  - Gastrointestinal haemorrhage [Recovered/Resolved]

NARRATIVE: CASE EVENT DATE: 20241108
